FAERS Safety Report 12124215 (Version 2)
Quarter: 2016Q1

REPORT INFORMATION
  Report Type: Spontaneous
  Country: ES (occurrence: ES)
  Receive Date: 20160229
  Receipt Date: 20160317
  Transmission Date: 20160526
  Serious: Yes (Other)
  Sender: FDA-Public Use
  Company Number: ES-LEO PHARMA-240350

PATIENT
  Age: 42 Year
  Sex: Male

DRUGS (1)
  1. DAIVOBET [Suspect]
     Active Substance: BETAMETHASONE DIPROPIONATE\CALCIPOTRIENE
     Indication: PSORIASIS
     Dosage: 1 APPLICATION EVERY 12 HR
     Route: 061
     Dates: start: 20150820, end: 20151022

REACTIONS (5)
  - Migraine [Recovered/Resolved]
  - Photophobia [Recovered/Resolved]
  - Incorrect drug administration duration [Unknown]
  - Balance disorder [Recovered/Resolved]
  - Inappropriate schedule of drug administration [Unknown]

NARRATIVE: CASE EVENT DATE: 20150820
